FAERS Safety Report 7452044-3 (Version None)
Quarter: 2011Q2

REPORT INFORMATION
  Report Type: 
  Country: None (occurrence: None)
  Receive Date: 20110425
  Receipt Date: 20110408
  Transmission Date: 20111010
  Serious: Yes (Hospitalization)
  Sender: FDA-Public Use
  Company Number: 2011SA024819

PATIENT
  Age: 76 Year
  Sex: Female

DRUGS (4)
  1. INSULIN [Concomitant]
  2. ASPIRIN [Suspect]
     Indication: PERCUTANEOUS CORONARY INTERVENTION
     Dosage: 325 MILLIGRAM(S); UNKNOWN; UNKNOWN
     Dates: start: 20100414
  3. PLAVIX [Suspect]
     Indication: PERCUTANEOUS CORONARY INTERVENTION
     Dosage: 600 MILLIGRAM (S); ONCE; UNKNOWN; 75 MILLIGRAM (S); DAILY; ORAL
     Route: 048
     Dates: start: 20101007, end: 20101007
  4. PLAVIX [Suspect]
     Indication: PERCUTANEOUS CORONARY INTERVENTION
     Dosage: 600 MILLIGRAM (S); ONCE; UNKNOWN; 75 MILLIGRAM (S); DAILY; ORAL
     Route: 048
     Dates: start: 20101008

REACTIONS (1)
  - HYPERGLYCAEMIA [None]
